FAERS Safety Report 8272366-6 (Version None)
Quarter: 2012Q2

REPORT INFORMATION
  Report Type: 
  Country: None (occurrence: None)
  Receive Date: 20120410
  Receipt Date: 20120405
  Transmission Date: 20120825
  Serious: Yes (Other)
  Sender: FDA-Public Use
  Company Number: BR-PFIZER INC-2012086558

PATIENT
  Age: 44 Year
  Sex: Female
  Weight: 51 kg

DRUGS (1)
  1. LYRICA [Suspect]
     Indication: FIBROMYALGIA
     Dosage: 1 CAPSULE OF 75 MG, EVERY 12 HOURS
     Route: 048
     Dates: start: 20120404

REACTIONS (6)
  - ABDOMINAL PAIN UPPER [None]
  - DIZZINESS [None]
  - SOMNOLENCE [None]
  - ACTIVITIES OF DAILY LIVING IMPAIRED [None]
  - HEAD DISCOMFORT [None]
  - NAUSEA [None]
